FAERS Safety Report 7690150-9 (Version None)
Quarter: 2011Q3

REPORT INFORMATION
  Report Type: 
  Country: None (occurrence: None)
  Receive Date: 20110811
  Receipt Date: 20110803
  Transmission Date: 20111222
  Serious: Yes (Hospitalization)
  Sender: FDA-Public Use
  Company Number: 2011SP036940

PATIENT
  Sex: Female

DRUGS (1)
  1. NUVARING [Suspect]
     Indication: CONTRACEPTION
     Dosage: ; QM; VAG
     Route: 067

REACTIONS (3)
  - PAIN [None]
  - GENERAL SYMPTOM [None]
  - ADVERSE REACTION [None]
